FAERS Safety Report 13210063 (Version 2)
Quarter: 2017Q1

REPORT INFORMATION
  Report Type: Spontaneous
  Country: US (occurrence: US)
  Receive Date: 20170210
  Receipt Date: 20170228
  Transmission Date: 20170428
  Serious: No
  Sender: FDA-Public Use
  Company Number: US-ASTRAZENECA-2017SE12084

PATIENT
  Sex: Male
  Weight: 102.1 kg

DRUGS (3)
  1. BYDUREON [Suspect]
     Active Substance: EXENATIDE
     Indication: TYPE 2 DIABETES MELLITUS
     Route: 058
  2. LEVEMIR [Concomitant]
     Active Substance: INSULIN DETEMIR
     Indication: TYPE 2 DIABETES MELLITUS
     Route: 058
  3. METFORMIN [Concomitant]
     Active Substance: METFORMIN HYDROCHLORIDE
     Indication: TYPE 2 DIABETES MELLITUS
     Route: 048

REACTIONS (8)
  - Abdominal discomfort [Unknown]
  - Gastrointestinal ulcer [Unknown]
  - Intentional product misuse [Unknown]
  - Injection site pain [Unknown]
  - Malaise [Unknown]
  - Injection site nodule [Unknown]
  - Weight decreased [Unknown]
  - Nausea [Unknown]
